FAERS Safety Report 5166735-0 (Version None)
Quarter: 2006Q4

REPORT INFORMATION
  Report Type: 
  Country: None (occurrence: None)
  Receive Date: 20061204
  Receipt Date: 20061204
  Transmission Date: 20070319
  Serious: Yes (Hospitalization)
  Sender: FDA-Public Use
  Company Number: None

PATIENT
  Age: 77 Year
  Sex: Male
  Weight: 77.6 kg

DRUGS (2)
  1. WARFARIN SODIUM [Suspect]
     Dosage: 5 MG QD PO
     Route: 048
  2. NAPROXEN [Suspect]
     Dosage: 500 MG BID PO
     Route: 048

REACTIONS (9)
  - ASTHENIA [None]
  - EROSIVE DUODENITIS [None]
  - GASTROINTESTINAL HAEMORRHAGE [None]
  - HAEMODYNAMIC INSTABILITY [None]
  - HYPERTENSION [None]
  - HYPOTENSION [None]
  - INTERNATIONAL NORMALISED RATIO INCREASED [None]
  - LUNG ABSCESS [None]
  - SEPSIS [None]
